FAERS Safety Report 5397278-7 (Version None)
Quarter: 2007Q3

REPORT INFORMATION
  Report Type: 
  Country: None (occurrence: None)
  Receive Date: 20070723
  Receipt Date: 20070719
  Transmission Date: 20080115
  Serious: Yes (Death, Life-Threatening, Hospitalization)
  Sender: FDA-Public Use
  Company Number: 2007SP014191

PATIENT
  Age: 65 Year
  Sex: Male

DRUGS (4)
  1. TEMOZOLOMIDE [Suspect]
     Indication: GLIOBLASTOMA
     Dosage: 75 MG/M2; 200 MG/M2; 200 MG/M2; 200 MG/M2;
     Dates: start: 20060531, end: 20060717
  2. TEMOZOLOMIDE [Suspect]
     Indication: GLIOBLASTOMA
     Dosage: 75 MG/M2; 200 MG/M2; 200 MG/M2; 200 MG/M2;
     Dates: start: 20060814, end: 20060814
  3. TEMOZOLOMIDE [Suspect]
     Indication: GLIOBLASTOMA
     Dosage: 75 MG/M2; 200 MG/M2; 200 MG/M2; 200 MG/M2;
     Dates: start: 20060911, end: 20060911
  4. TEMOZOLOMIDE [Suspect]
     Indication: GLIOBLASTOMA
     Dosage: 75 MG/M2; 200 MG/M2; 200 MG/M2; 200 MG/M2;
     Dates: start: 20061009, end: 20061009

REACTIONS (5)
  - GLIOBLASTOMA MULTIFORME [None]
  - MALIGNANT NEOPLASM PROGRESSION [None]
  - PARTIAL SEIZURES [None]
  - RESPIRATORY FAILURE [None]
  - STATUS EPILEPTICUS [None]
